FAERS Safety Report 6040993-2 (Version None)
Quarter: 2009Q1

REPORT INFORMATION
  Report Type: 
  Country: None (occurrence: None)
  Receive Date: 20090116
  Receipt Date: 20080722
  Transmission Date: 20090719
  Serious: No
  Sender: FDA-Public Use
  Company Number: US-BRISTOL-MYERS SQUIBB COMPANY-14271209

PATIENT
  Age: 75 Year
  Sex: Female

DRUGS (1)
  1. ABILIFY [Suspect]
     Dosage: ABILIFY 2MG PROVIDED BY PHARMACIST HAD NDC# 59148000613, LOT# 8840777A AND EXPIRATION DATE 02/2010

REACTIONS (1)
  - MALAISE [None]
